FAERS Safety Report 8339363-3 (Version None)
Quarter: 2012Q2

REPORT INFORMATION
  Report Type: 
  Country: None (occurrence: None)
  Receive Date: 20120507
  Receipt Date: 20120502
  Transmission Date: 20120825
  Serious: Yes (Life-Threatening, Disabling, Other)
  Sender: FDA-Public Use
  Company Number: US-US-EMD SERONO, INC.-7130143

PATIENT
  Sex: Male

DRUGS (2)
  1. SAIZEN [Suspect]
     Dates: start: 20110801
  2. SAIZEN [Suspect]
     Indication: DWARFISM
     Dates: start: 20080601, end: 20110201

REACTIONS (5)
  - BRONCHIECTASIS [None]
  - GASTROOESOPHAGEAL REFLUX DISEASE [None]
  - DEAFNESS [None]
  - PNEUMONIA STAPHYLOCOCCAL [None]
  - VITAMIN D DEFICIENCY [None]
